FAERS Safety Report 7172187 (Version 2)
Quarter: 2013Q3

REPORT INFORMATION
  Report Type: Spontaneous
  Country: None (occurrence: None)
  Receive Date: 20091027
  Receipt Date: 20130709
  Transmission Date: 20140515
  Serious: Yes (Other)
  Sender: FDA-Public Use
  Company Number: AUR-APL-2009-00901

PATIENT
  Age: 57 Year
  Sex: Female

DRUGS (1)
  1. ATENOLOL [Suspect]
     Indication: HYPERTENSION
     Dosage: DOSE, FREQUENCY, + ROUTE USED UNKNOWN, THERAPY DATES UNKNOWN - UNKNOWN

REACTIONS (11)
  - Hepatic failure [None]
  - Cholestasis [None]
  - Ascites [None]
  - Hepatic necrosis [None]
  - White blood cell count decreased [None]
  - Platelet count decreased [None]
  - Hypertension [None]
  - Asthenia [None]
  - Transplant rejection [None]
  - Hepatitis toxic [None]
  - Hepatic cirrhosis [None]
